FAERS Safety Report 5400135-0 (Version None)
Quarter: 2007Q3

REPORT INFORMATION
  Report Type: 
  Country: None (occurrence: None)
  Receive Date: 20070725
  Receipt Date: 20070711
  Transmission Date: 20080115
  Serious: Yes (Other)
  Sender: FDA-Public Use
  Company Number: CAP07000291

PATIENT
  Age: 80 Year
  Sex: Female

DRUGS (4)
  1. ACTONEL [Suspect]
     Dosage: 35 MG, 1 /WEEK, ORAL
     Route: 048
     Dates: start: 20030101, end: 20070710
  2. CALCIUM WITH VITAMIN D /00944201/ (COLECALCIFEROL, CALCIUM CARBONATE) [Concomitant]
  3. TRIMETHOPRIM [Concomitant]
  4. ASADOL (ACETYLSALICYLIC ACID) [Concomitant]

REACTIONS (9)
  - ACTIVITIES OF DAILY LIVING IMPAIRED [None]
  - BLINDNESS UNILATERAL [None]
  - BLOOD PRESSURE INCREASED [None]
  - COLOUR BLINDNESS [None]
  - CORNEAL DEPOSITS [None]
  - CORNEAL DISORDER [None]
  - EYE INFLAMMATION [None]
  - EYE PAIN [None]
  - NERVOUSNESS [None]
